FAERS Safety Report 20130773 (Version 3)
Quarter: 2022Q1

REPORT INFORMATION
  Report Type: Report from Study
  Country: CH (occurrence: CH)
  Receive Date: 20211130
  Receipt Date: 20220225
  Transmission Date: 20220423
  Serious: Yes (Hospitalization, Other)
  Sender: FDA-Public Use
  Company Number: CH-UCBSA-2021055203

PATIENT
  Sex: Female
  Weight: 75 kg

DRUGS (14)
  1. CIMZIA [Suspect]
     Active Substance: CERTOLIZUMAB PEGOL
     Indication: Psoriatic arthropathy
     Dosage: 200 MILLIGRAM, EV 2 WEEKS(QOW)
     Route: 058
     Dates: start: 20210714, end: 20211110
  2. CIMZIA [Suspect]
     Active Substance: CERTOLIZUMAB PEGOL
     Indication: Psoriasis
  3. OTEZLA [Concomitant]
     Active Substance: APREMILAST
     Indication: Palmoplantar pustulosis
     Route: 061
  4. OTEZLA [Concomitant]
     Active Substance: APREMILAST
     Indication: Psoriasis
  5. OTEZLA [Concomitant]
     Active Substance: APREMILAST
     Indication: Psoriatic arthropathy
  6. COSENTYX [Concomitant]
     Active Substance: SECUKINUMAB
     Indication: Palmoplantar pustulosis
     Route: 061
  7. COSENTYX [Concomitant]
     Active Substance: SECUKINUMAB
     Indication: Psoriasis
  8. COSENTYX [Concomitant]
     Active Substance: SECUKINUMAB
     Indication: Psoriatic arthropathy
  9. CLOBETASOL [Concomitant]
     Active Substance: CLOBETASOL
     Indication: Palmoplantar pustulosis
     Route: 061
  10. CLOBETASOL [Concomitant]
     Active Substance: CLOBETASOL
     Indication: Psoriasis
  11. CLOBETASOL [Concomitant]
     Active Substance: CLOBETASOL
     Indication: Psoriatic arthropathy
  12. NUTRAPLUS [Concomitant]
     Indication: Product used for unknown indication
     Dosage: UNK
  13. GUSELKUMAB [Concomitant]
     Active Substance: GUSELKUMAB
     Indication: Product used for unknown indication
     Dosage: 100 MILLIGRAM
     Route: 058
     Dates: start: 20210106
  14. GUSELKUMAB [Concomitant]
     Active Substance: GUSELKUMAB
     Dosage: 100MG EVERY 8WEEKS
     Route: 058

REACTIONS (4)
  - Epilepsy [Unknown]
  - Head injury [Unknown]
  - Maternal exposure during pregnancy [Unknown]
  - Maternal exposure before pregnancy [Unknown]

NARRATIVE: CASE EVENT DATE: 20210101
